FAERS Safety Report 7046479-0 (Version None)
Quarter: 2010Q4

REPORT INFORMATION
  Report Type: 
  Country: None (occurrence: None)
  Receive Date: 20101014
  Receipt Date: 20101008
  Transmission Date: 20110411
  Serious: Yes (Life-Threatening, Hospitalization)
  Sender: FDA-Public Use
  Company Number: US-GENENTECH-303924

PATIENT
  Sex: Male
  Weight: 112.47 kg

DRUGS (1)
  1. RITUXAN [Suspect]
     Indication: RHEUMATOID ARTHRITIS
     Dosage: 24 G, UNK
     Route: 042
     Dates: start: 20100614

REACTIONS (4)
  - CHEST PAIN [None]
  - PROSTATE CANCER [None]
  - PULMONARY HAEMORRHAGE [None]
  - SHOCK [None]
